FAERS Safety Report 24675466 (Version 1)
Quarter: 2024Q4

REPORT INFORMATION
  Report Type: Spontaneous
  Country: SI (occurrence: SI)
  Receive Date: 20241128
  Receipt Date: 20241128
  Transmission Date: 20250114
  Serious: Yes (Death, Life-Threatening, Hospitalization, Other)
  Sender: BRISTOL-MYERS SQUIBB COMPANY
  Company Number: SI-BRISTOL-MYERS SQUIBB COMPANY-2024-182273

PATIENT
  Age: 77 Year
  Sex: Male

DRUGS (2)
  1. NIVOLUMAB [Suspect]
     Active Substance: NIVOLUMAB
     Indication: Pleural mesothelioma malignant
     Dates: start: 202407
  2. IPILIMUMAB [Suspect]
     Active Substance: IPILIMUMAB
     Indication: Pleural mesothelioma malignant
     Dates: start: 202407

REACTIONS (4)
  - Immune-mediated dermatitis [Unknown]
  - Immune-mediated hepatic disorder [Unknown]
  - Rhabdomyolysis [Fatal]
  - Immune-mediated myocarditis [Fatal]
